FAERS Safety Report 13105994 (Version 3)
Quarter: 2017Q3

REPORT INFORMATION
  Report Type: Spontaneous
  Country: US (occurrence: US)
  Receive Date: 20170111
  Receipt Date: 20170710
  Transmission Date: 20171127
  Serious: No
  Sender: FDA-Public Use
  Company Number: US-RETROPHIN, INC.-2016RTN00025

PATIENT
  Sex: Male
  Weight: 6.41 kg

DRUGS (3)
  1. DIAZOXIDE [Concomitant]
     Active Substance: DIAZOXIDE
  2. CHOLBAM [Suspect]
     Active Substance: CHOLIC ACID
     Indication: INBORN ERROR IN PRIMARY BILE ACID SYNTHESIS
     Dosage: 50 MG, 1X/DAY
     Route: 048
     Dates: start: 201610
  3. DIGOXIN. [Concomitant]
     Active Substance: DIGOXIN

REACTIONS (2)
  - Dermatitis [Recovering/Resolving]
  - Eczema [Recovering/Resolving]

NARRATIVE: CASE EVENT DATE: 2016
